FAERS Safety Report 8434470-9 (Version None)
Quarter: 2012Q2

REPORT INFORMATION
  Report Type: 
  Country: None (occurrence: None)
  Receive Date: 20120614
  Receipt Date: 20120607
  Transmission Date: 20120825
  Serious: Yes (Hospitalization, Other)
  Sender: FDA-Public Use
  Company Number: GR-BIOGENIDEC-2012BI018651

PATIENT
  Age: 39 Year
  Sex: Female
  Weight: 100 kg

DRUGS (1)
  1. TYSABRI [Suspect]
     Indication: MULTIPLE SCLEROSIS
     Route: 042
     Dates: start: 20080110, end: 20120301

REACTIONS (2)
  - IMMUNE RECONSTITUTION SYNDROME [None]
  - PROGRESSIVE MULTIFOCAL LEUKOENCEPHALOPATHY [None]
